FAERS Safety Report 14968794 (Version 1)
Quarter: 2018Q2

REPORT INFORMATION
  Report Type: Spontaneous
  Country: CH (occurrence: CH)
  Receive Date: 20180604
  Receipt Date: 20180604
  Transmission Date: 20180711
  Serious: Yes (Hospitalization)
  Sender: FDA-Public Use
  Company Number: CH-PFIZER INC-2018219728

PATIENT
  Age: 83 Year
  Sex: Female
  Weight: 53 kg

DRUGS (7)
  1. TRAMAL [Concomitant]
     Active Substance: TRAMADOL
     Dosage: 20 MG, 4X/DAY
     Route: 048
  2. DILZEM [Concomitant]
     Active Substance: DILTIAZEM
     Dosage: 120 MG, 1X/DAY
     Route: 048
  3. XARELTO [Suspect]
     Active Substance: RIVAROXABAN
     Indication: ATRIAL FIBRILLATION
     Dosage: 15 MG, 1X/DAY
     Route: 048
  4. PALLADON [Concomitant]
     Active Substance: HYDROMORPHONE
     Dosage: 2.6 MG, UNK
     Route: 048
  5. PONSTAN [Suspect]
     Active Substance: MEFENAMIC ACID
     Indication: SKIN ULCER
     Dosage: 1000 MG, 3X/DAY
     Route: 048
     Dates: start: 20180313
  6. ALDACTONE [Suspect]
     Active Substance: SPIRONOLACTONE
     Dosage: 25 MG, 1X/DAY
     Route: 048
  7. LYRICA [Concomitant]
     Active Substance: PREGABALIN
     Dosage: 25 MG, 1X/DAY
     Route: 048

REACTIONS (4)
  - Gastric ulcer [Not Recovered/Not Resolved]
  - General physical health deterioration [Unknown]
  - Upper gastrointestinal haemorrhage [Not Recovered/Not Resolved]
  - Melanaemia [Unknown]

NARRATIVE: CASE EVENT DATE: 201805
